FAERS Safety Report 9259145 (Version 1)
Quarter: 2013Q2

REPORT INFORMATION
  Report Type: Spontaneous
  Country: US (occurrence: US)
  Receive Date: 20130426
  Receipt Date: 20130426
  Transmission Date: 20140414
  Serious: Yes (Other)
  Sender: FDA-Public Use
  Company Number: CHPA2013US006908

PATIENT
  Age: 75 Year
  Sex: Female

DRUGS (4)
  1. EXCEDRIN EXTRA STRENGTH [Suspect]
     Indication: JUVENILE IDIOPATHIC ARTHRITIS
     Dosage: 1 DF, 5QD
     Route: 048
  2. EXCEDRIN EXTRA STRENGTH [Suspect]
     Indication: HEADACHE
  3. EXCEDRIN EXTRA STRENGTH [Suspect]
     Indication: ARTHRALGIA
  4. CELEBREX [Concomitant]
     Dosage: UNK, UNK

REACTIONS (15)
  - Sick sinus syndrome [Recovered/Resolved]
  - Arrhythmia [Recovered/Resolved]
  - Bradycardia [Not Recovered/Not Resolved]
  - Heart rate irregular [Not Recovered/Not Resolved]
  - Chest pain [Recovered/Resolved]
  - Synovial cyst [Recovered/Resolved]
  - Joint swelling [Recovered/Resolved]
  - Juvenile idiopathic arthritis [Not Recovered/Not Resolved]
  - Ulcer [Recovered/Resolved]
  - Intervertebral disc degeneration [Not Recovered/Not Resolved]
  - Intervertebral disc protrusion [Not Recovered/Not Resolved]
  - Gait disturbance [Unknown]
  - Off label use [Unknown]
  - Underdose [Unknown]
  - Inappropriate schedule of drug administration [Unknown]
